FAERS Safety Report 11281378 (Version 13)
Quarter: 2016Q2

REPORT INFORMATION
  Report Type: Spontaneous
  Country: CN (occurrence: CN)
  Receive Date: 20150717
  Receipt Date: 20160622
  Transmission Date: 20160815
  Serious: Yes (Death, Hospitalization, Other)
  Sender: FDA-Public Use
  Company Number: CN-009507513-1507CHN007847

PATIENT
  Age: 46 Year
  Sex: Female
  Weight: 60 kg

DRUGS (20)
  1. THYMOSIN [Concomitant]
     Active Substance: THYMOSIN
     Indication: IMMUNE ENHANCEMENT THERAPY
     Dosage: 90 MG, QD
     Route: 048
     Dates: start: 20150623
  2. NIFEDIPINE. [Concomitant]
     Active Substance: NIFEDIPINE
     Indication: BLOOD PRESSURE INCREASED
     Dosage: 30 MG, QD
     Route: 048
     Dates: start: 20150623
  3. DEXAMETHASONE. [Concomitant]
     Active Substance: DEXAMETHASONE
     Indication: ANTIALLERGIC THERAPY
     Dosage: 5 MG, QD
     Route: 042
     Dates: start: 20150703, end: 20150703
  4. EMEND [Suspect]
     Active Substance: APREPITANT
     Indication: PROPHYLAXIS OF NAUSEA AND VOMITING
     Dosage: 125 MG (DAY 1)
     Route: 048
     Dates: start: 20150626, end: 20150626
  5. PALONOSETRON HYDROCHLORIDE. [Concomitant]
     Active Substance: PALONOSETRON HYDROCHLORIDE
     Indication: PROPHYLAXIS OF NAUSEA AND VOMITING
     Dosage: 0.25 MG, QD
     Route: 042
     Dates: start: 20150626, end: 20150626
  6. CISPLATIN. [Concomitant]
     Active Substance: CISPLATIN
     Indication: CHEMOTHERAPY
     Dosage: 40 MG, DAY1 TO DAY 2, TREATMENT CYCLE: 1/UNK
     Route: 041
     Dates: start: 20150626, end: 20150627
  7. DIPHENHYDRAMINE. [Concomitant]
     Active Substance: DIPHENHYDRAMINE
     Indication: PROPHYLAXIS OF NAUSEA AND VOMITING
     Dosage: 40 MG, QD
     Route: 030
     Dates: start: 20150626, end: 20150629
  8. LACTULOSE. [Concomitant]
     Active Substance: LACTULOSE
     Indication: PURGING
     Dosage: 15 ML, TID
     Route: 048
     Dates: start: 20150628, end: 20150628
  9. DEXAMETHASONE. [Concomitant]
     Active Substance: DEXAMETHASONE
     Indication: PROPHYLAXIS OF NAUSEA AND VOMITING
     Dosage: 5 MG, QD
     Route: 042
     Dates: start: 20150626, end: 20150629
  10. TROPISETRON [Concomitant]
     Active Substance: TROPISETRON
     Indication: PROPHYLAXIS OF NAUSEA AND VOMITING
     Dosage: 5 MG, BID
     Route: 042
     Dates: start: 20150626, end: 20150629
  11. ZOLEDRONIC ACID [Concomitant]
     Active Substance: ZOLEDRONIC ACID
     Indication: PROPHYLAXIS
     Dosage: 4 MG, QD
     Route: 041
     Dates: start: 20150624, end: 20150624
  12. EMEND [Suspect]
     Active Substance: APREPITANT
     Dosage: 80 MG (DAY 2)
     Route: 048
     Dates: start: 20150627, end: 20150627
  13. GEMCITABINE HYDROCHLORIDE. [Concomitant]
     Active Substance: GEMCITABINE HYDROCHLORIDE
     Indication: CHEMOTHERAPY
     Dosage: 1.6G, DAY 1, TREATMENT CYCLE: 1/UNK
     Route: 041
     Dates: start: 20150626, end: 20150626
  14. GEMCITABINE HYDROCHLORIDE. [Concomitant]
     Active Substance: GEMCITABINE HYDROCHLORIDE
     Dosage: 1.6G DAY 8, TREATMENT CYCLE: 1/UNK
     Route: 041
     Dates: start: 20150703, end: 20150703
  15. PYRIDOXINE [Concomitant]
     Active Substance: PYRIDOXINE
     Indication: FLUID REPLACEMENT
     Dosage: 100 MG, QD
     Route: 041
     Dates: start: 20150626, end: 20150629
  16. OXYGEN. [Concomitant]
     Active Substance: OXYGEN
     Indication: INHALATION THERAPY
     Dosage: UNK
     Dates: start: 20150630, end: 20150630
  17. CISPLATIN. [Concomitant]
     Active Substance: CISPLATIN
     Dosage: 30 MG, DAY 3, TREATMENT CYCLE: 1/UNK
     Route: 041
     Dates: start: 20150628, end: 20150628
  18. EMEND [Suspect]
     Active Substance: APREPITANT
     Dosage: 80 MG (DAY 3)
     Route: 048
     Dates: start: 20150628, end: 20150628
  19. BOVINE SPLEEN [Concomitant]
     Indication: IMMUNE ENHANCEMENT THERAPY
     Dosage: 10 ML, QD
     Route: 041
     Dates: start: 20150623, end: 20150704
  20. PALONOSETRON HYDROCHLORIDE. [Concomitant]
     Active Substance: PALONOSETRON HYDROCHLORIDE
     Dosage: 0.25 MG, QD
     Route: 042
     Dates: start: 20150703, end: 20150703

REACTIONS (1)
  - Metastases to central nervous system [Fatal]

NARRATIVE: CASE EVENT DATE: 20150630
